FAERS Safety Report 6860185-4 (Version None)
Quarter: 2010Q3

REPORT INFORMATION
  Report Type: 
  Country: None (occurrence: None)
  Receive Date: 20100719
  Receipt Date: 20100719
  Transmission Date: 20110219
  Serious: No
  Sender: FDA-Public Use
  Company Number: None

PATIENT
  Age: 68 Year
  Sex: Male
  Weight: 105 kg

DRUGS (1)
  1. PRIMIDONE [Suspect]
     Dosage: 50 MG AT BEDTIME PO
     Route: 048
     Dates: start: 20100528, end: 20100707

REACTIONS (2)
  - CONFUSIONAL STATE [None]
  - DELIRIUM [None]
